FAERS Safety Report 6545922-0 (Version None)
Quarter: 2010Q1

REPORT INFORMATION
  Report Type: 
  Country: None (occurrence: None)
  Receive Date: 20100121
  Receipt Date: 20100121
  Transmission Date: 20100710
  Serious: No
  Sender: FDA-Public Use
  Company Number: None

PATIENT
  Age: 40 Year
  Sex: Male
  Weight: 101.1 kg

DRUGS (1)
  1. NAPROXEN [Suspect]
     Indication: PAIN
     Dates: end: 20091230

REACTIONS (1)
  - RENAL FAILURE ACUTE [None]
